FAERS Safety Report 4719203-1 (Version None)
Quarter: 2005Q3

REPORT INFORMATION
  Report Type: 
  Country: None (occurrence: None)
  Receive Date: 20050720
  Receipt Date: 20050706
  Transmission Date: 20060218
  Serious: Yes (Hospitalization, Other)
  Sender: FDA-Public Use
  Company Number: 2005097279

PATIENT
  Age: 37 Year
  Sex: Female

DRUGS (7)
  1. CARBAMAZEPINE [Suspect]
     Indication: BURNING SENSATION
     Dosage: ORAL
     Route: 048
  2. OXYBUTYNIN CHLORIDE [Suspect]
     Indication: HYPERTONIC BLADDER
     Dosage: ORAL
     Route: 048
  3. DANTROLENE SODIUM [Suspect]
     Indication: MUSCLE SPASTICITY
     Dosage: ORAL
     Route: 048
  4. FLUVOXAMINE MALEATE [Concomitant]
  5. BACLOFEN [Concomitant]
  6. ATENOLO (ATENOLOL) [Concomitant]
  7. SPINAL CORD [Concomitant]

REACTIONS (13)
  - BALANCE DISORDER [None]
  - CONFUSIONAL STATE [None]
  - DIZZINESS [None]
  - DRUG TOXICITY [None]
  - DYSARTHRIA [None]
  - ELECTROENCEPHALOGRAM ABNORMAL [None]
  - HYPERTONIC BLADDER [None]
  - MUSCLE SPASTICITY [None]
  - NYSTAGMUS [None]
  - PAIN [None]
  - POLLAKIURIA [None]
  - SOMNOLENCE [None]
  - VOMITING [None]
